FAERS Safety Report 13274116 (Version 1)
Quarter: 2017Q1

REPORT INFORMATION
  Report Type: Spontaneous
  Country: SN (occurrence: SN)
  Receive Date: 20170227
  Receipt Date: 20170227
  Transmission Date: 20170428
  Serious: Yes (Other)
  Sender: FDA-Public Use
  Company Number: SN-SA-2017SA030312

PATIENT

DRUGS (1)
  1. CHLOROQUINE. [Suspect]
     Active Substance: CHLOROQUINE
     Route: 065

REACTIONS (5)
  - Myasthenic syndrome [Recovered/Resolved]
  - Toxicity to various agents [Unknown]
  - Neuromyopathy [Recovered/Resolved]
  - Histology abnormal [Recovered/Resolved]
  - Electroencephalogram abnormal [Recovered/Resolved]
